FAERS Safety Report 5490540-9 (Version None)
Quarter: 2007Q4

REPORT INFORMATION
  Report Type: 
  Country: None (occurrence: None)
  Receive Date: 20071019
  Receipt Date: 20071015
  Transmission Date: 20080405
  Serious: Yes (Hospitalization)
  Sender: FDA-Public Use
  Company Number: MX-BRISTOL-MYERS SQUIBB COMPANY-13927017

PATIENT
  Age: 54 Year
  Sex: Female

DRUGS (4)
  1. ABATACEPT [Suspect]
     Indication: RHEUMATOID ARTHRITIS
     Route: 042
     Dates: start: 20060830
  2. METHOTREXATE [Concomitant]
     Dates: start: 20060830
  3. FOLIC ACID [Concomitant]
     Dates: start: 20060830
  4. PREDNISONE [Concomitant]
     Dates: start: 20060925

REACTIONS (1)
  - CHOLELITHIASIS [None]
